FAERS Safety Report 26131551 (Version 1)
Quarter: 2025Q4

REPORT INFORMATION
  Report Type: Spontaneous
  Country: GB (occurrence: GB)
  Receive Date: 20251208
  Receipt Date: 20251208
  Transmission Date: 20260118
  Serious: Yes (Other)
  Sender: ELI LILLY AND COMPANY
  Company Number: None

PATIENT
  Sex: Female

DRUGS (1)
  1. BARICITINIB [Suspect]
     Active Substance: BARICITINIB
     Indication: Dermatitis atopic
     Dosage: 4 MG, DAILY
     Route: 065
     Dates: start: 20231015

REACTIONS (5)
  - Squamous cell carcinoma [Unknown]
  - Basal cell carcinoma [Unknown]
  - Anogenital warts [Unknown]
  - Skin papilloma [Unknown]
  - Molluscum contagiosum [Unknown]

NARRATIVE: CASE EVENT DATE: 20240401
